FAERS Safety Report 5984328-X (Version None)
Quarter: 2008Q4

REPORT INFORMATION
  Report Type: 
  Country: None (occurrence: None)
  Receive Date: 20081208
  Receipt Date: 20081127
  Transmission Date: 20090506
  Serious: Yes (Hospitalization, Other)
  Sender: FDA-Public Use
  Company Number: PHHY2008AT26646

PATIENT
  Age: 60 Year
  Sex: Female

DRUGS (5)
  1. GLEEVEC [Suspect]
     Indication: GLIOBLASTOMA
     Dosage: 400 MG/DAY
     Dates: start: 20070720, end: 20081013
  2. CIPRALEX                                /DEN/ [Concomitant]
     Indication: DEPRESSION
     Dosage: 10 MG
  3. FORTECORTIN [Concomitant]
     Indication: BRAIN OEDEMA
  4. LASIX [Concomitant]
     Indication: OEDEMA PERIPHERAL
  5. SPIROBENE [Concomitant]
     Indication: OEDEMA PERIPHERAL
     Dosage: 100 MG

REACTIONS (9)
  - ECZEMA [None]
  - EPIDERMOLYSIS [None]
  - LACRIMATION INCREASED [None]
  - LIVEDO RETICULARIS [None]
  - OEDEMA PERIPHERAL [None]
  - PRURITUS [None]
  - SKIN EXFOLIATION [None]
  - SKIN ULCER [None]
  - VASCULITIS [None]
